FAERS Safety Report 19611235 (Version 1)
Quarter: 2021Q3

REPORT INFORMATION
  Report Type: Spontaneous
  Country: US (occurrence: US)
  Receive Date: 20210726
  Receipt Date: 20210726
  Transmission Date: 20211014
  Serious: No
  Sender: FDA-Public Use
  Company Number: US-ENDO PHARMACEUTICALS INC-2020-005146

PATIENT
  Sex: Male
  Weight: 83.9 kg

DRUGS (7)
  1. EDEX [Suspect]
     Active Substance: ALPROSTADIL
     Indication: ERECTILE DYSFUNCTION
     Dosage: UNK UNKNOWN, UNKNOWN
     Route: 065
  2. EDEX [Suspect]
     Active Substance: ALPROSTADIL
     Dosage: UNK UNKNOWN, UNKNOWN
     Route: 065
     Dates: start: 20200710
  3. EDEX [Suspect]
     Active Substance: ALPROSTADIL
     Indication: ERECTILE DYSFUNCTION
     Dosage: UNK UNKNOWN, UNKNOWN
     Route: 065
  4. ANTIHYPERTENSIVES [Concomitant]
     Active Substance: UNSPECIFIED INGREDIENT
     Indication: HYPERTENSION
  5. EDEX [Suspect]
     Active Substance: ALPROSTADIL
     Dosage: UNK UNKNOWN, UNKNOWN
     Route: 065
     Dates: start: 20200710
  6. EDEX [Suspect]
     Active Substance: ALPROSTADIL
     Indication: ERECTILE DYSFUNCTION
     Dosage: UNK UNKNOWN, UNKNOWN
     Route: 065
  7. EDEX [Suspect]
     Active Substance: ALPROSTADIL
     Dosage: UNK UNKNOWN, UNKNOWN
     Route: 065
     Dates: start: 20200710

REACTIONS (2)
  - Needle issue [Unknown]
  - Injection site pain [Recovered/Resolved]

NARRATIVE: CASE EVENT DATE: 20200710
